FAERS Safety Report 7177788-2 (Version None)
Quarter: 2010Q4

REPORT INFORMATION
  Report Type: 
  Country: None (occurrence: None)
  Receive Date: 20101208
  Receipt Date: 20101124
  Transmission Date: 20110411
  Serious: Yes (Disabling, Other)
  Sender: FDA-Public Use
  Company Number: ACO_20599_2010

PATIENT
  Age: 53 Year
  Sex: Male
  Weight: 90.7 kg

DRUGS (7)
  1. AMPYRA [Suspect]
     Indication: GAIT DISTURBANCE
     Dosage: 10 MG, BID, ORAL
     Route: 048
     Dates: start: 20101103
  2. CELEBREX [Concomitant]
  3. ULTRAM [Concomitant]
  4. NAMENDA [Concomitant]
  5. FLOMAX /00889901/ (MORNIFLUMATE) [Concomitant]
  6. OXYBUTYNIN CHLORIDE [Concomitant]
  7. RANITIDINE [Concomitant]

REACTIONS (1)
  - MOBILITY DECREASED [None]
